FAERS Safety Report 7808122-X (Version None)
Quarter: 2011Q4

REPORT INFORMATION
  Report Type: 
  Country: None (occurrence: None)
  Receive Date: 20111011
  Receipt Date: 20110926
  Transmission Date: 20120403
  Serious: Yes (Life-Threatening, Hospitalization, Other)
  Sender: FDA-Public Use
  Company Number: US-ROCHE-799740

PATIENT
  Sex: Male
  Weight: 59 kg

DRUGS (1)
  1. VEMURAFENIB [Suspect]
     Indication: METASTATIC MALIGNANT MELANOMA
     Dosage: LAST DOSE PRIOR TO STUDY DRUG: 30 AUGUST 2011
     Route: 048

REACTIONS (13)
  - BLOOD GLUCOSE INCREASED [None]
  - NEUTROPHIL COUNT DECREASED [None]
  - PAIN [None]
  - METASTATIC MALIGNANT MELANOMA [None]
  - NEOPLASM PROGRESSION [None]
  - FATIGUE [None]
  - DYSPNOEA [None]
  - CHEST DISCOMFORT [None]
  - CHEST PAIN [None]
  - ASTHENIA [None]
  - NEUTROPHIL COUNT ABNORMAL [None]
  - WHITE BLOOD CELL COUNT DECREASED [None]
  - PYREXIA [None]
